FAERS Safety Report 12341316 (Version 1)
Quarter: 2016Q2

REPORT INFORMATION
  Report Type: Spontaneous
  Country: US (occurrence: US)
  Receive Date: 20160506
  Receipt Date: 20160506
  Transmission Date: 20160815
  Serious: No
  Sender: FDA-Public Use
  Company Number: US-BIOGEN-2016BI00229689

PATIENT
  Sex: Female

DRUGS (1)
  1. TYSABRI [Suspect]
     Active Substance: NATALIZUMAB
     Indication: MULTIPLE SCLEROSIS
     Route: 042
     Dates: start: 20160218

REACTIONS (5)
  - Temperature intolerance [Not Recovered/Not Resolved]
  - Apathy [Unknown]
  - Negativism [Not Recovered/Not Resolved]
  - Anxiety [Not Recovered/Not Resolved]
  - Mental status changes [Unknown]
